FAERS Safety Report 9275528 (Version 2)
Quarter: 2013Q2

REPORT INFORMATION
  Report Type: Spontaneous
  Country: CA (occurrence: None)
  Receive Date: 20130430
  Receipt Date: 20130613
  Transmission Date: 20140414
  Serious: Yes (Other)
  Sender: FDA-Public Use
  Company Number: MC201300194

PATIENT
  Age: 18 Month
  Sex: 0
  Weight: 8 kg

DRUGS (5)
  1. ANGIOMAX, ANGIOX (BIVALIRUDIN) INJECTION [Suspect]
     Indication: DRUG THERAPY
     Dosage: 0.8 MG/KG/HR, DISCONTINUED AFTER INITIATION OF CPB, INTRAVENOUS
     Route: 042
  2. EPOPROSTENOL (EPOPROSTENOL) [Concomitant]
  3. ASA (ASA) [Concomitant]
  4. DIPYRIDAMOLE (DIPYRIDAMOLE) [Concomitant]
  5. CLOPIDOGREL (CLOPIDOGREL) [Concomitant]

REACTIONS (2)
  - Cerebral infarction [None]
  - Off label use [None]
